FAERS Safety Report 5612194-0 (Version None)
Quarter: 2008Q1

REPORT INFORMATION
  Report Type: 
  Country: None (occurrence: None)
  Receive Date: 20080204
  Receipt Date: 20080121
  Transmission Date: 20080703
  Serious: Yes (Hospitalization)
  Sender: FDA-Public Use
  Company Number: DE-AMGEN-UK261609

PATIENT
  Age: 54 Year
  Sex: Female

DRUGS (8)
  1. KINERET [Suspect]
     Indication: DRUG USE FOR UNKNOWN INDICATION
  2. PREDNISOLONE [Suspect]
  3. METHOTREXATE [Suspect]
     Route: 048
  4. IBANDRONATE [Concomitant]
     Route: 042
  5. PANTOZOL [Concomitant]
  6. CALCIUM CARBONATE/VITAMIN D3 [Concomitant]
  7. PARACETAMOL [Concomitant]
  8. VALORON [Concomitant]

REACTIONS (1)
  - HERPES ZOSTER [None]
